FAERS Safety Report 4869339-X (Version None)
Quarter: 2005Q4

REPORT INFORMATION
  Report Type: 
  Country: None (occurrence: None)
  Receive Date: 20051230
  Receipt Date: 20051218
  Transmission Date: 20060501
  Serious: Yes (Other)
  Sender: FDA-Public Use
  Company Number: US-KINGPHARMUSA00001-K200501630

PATIENT
  Age: 37 Year
  Sex: Male
  Weight: 96 kg

DRUGS (5)
  1. ALTACE [Suspect]
     Indication: MYOCARDIAL INFARCTION
     Dosage: 10 MG, QD
     Route: 048
     Dates: start: 19990301, end: 20051201
  2. TOPROL-XL [Concomitant]
     Indication: DRESSLER'S SYNDROME
     Dates: start: 19990301
  3. ASPIRIN [Concomitant]
     Indication: DRESSLER'S SYNDROME
     Dates: start: 19990301
  4. CRESTOR [Suspect]
     Dosage: UNK, UNK
     Route: 048
     Dates: start: 20040101, end: 20051201
  5. ZOCOR [Suspect]
     Dosage: UNK, UNK
     Route: 048
     Dates: start: 19990101, end: 20040101

REACTIONS (7)
  - ASTHENIA [None]
  - FATIGUE [None]
  - IMPAIRED WORK ABILITY [None]
  - LETHARGY [None]
  - MENTAL IMPAIRMENT [None]
  - MOTOR DYSFUNCTION [None]
  - SLEEP APNOEA SYNDROME [None]
